FAERS Safety Report 7061070-8 (Version None)
Quarter: 2010Q4

REPORT INFORMATION
  Report Type: 
  Country: None (occurrence: None)
  Receive Date: 20101026
  Receipt Date: 20101019
  Transmission Date: 20110411
  Serious: Yes (Other)
  Sender: FDA-Public Use
  Company Number: AU-PFIZER INC-2010121216

PATIENT
  Age: 50 Year
  Sex: Female
  Weight: 65 kg

DRUGS (2)
  1. CHAMPIX [Suspect]
     Indication: SMOKING CESSATION THERAPY
     Dosage: 1 MG, 2X/DAY
     Dates: start: 20080101
  2. KLIOGEST [Concomitant]
     Indication: HORMONE REPLACEMENT THERAPY
     Dosage: 1MG/2MG, 1X/DAY
     Route: 048

REACTIONS (4)
  - FOOD INTERACTION [None]
  - MUSCLE TWITCHING [None]
  - NAUSEA [None]
  - PERSONALITY DISORDER [None]
